FAERS Safety Report 18300140 (Version 1)
Quarter: 2020Q3

REPORT INFORMATION
  Report Type: Spontaneous
  Country: CN (occurrence: CN)
  Receive Date: 20200923
  Receipt Date: 20200923
  Transmission Date: 20201103
  Serious: Yes (Hospitalization)
  Sender: FDA-Public Use
  Company Number: CN-ROCHE-2681742

PATIENT
  Age: 85 Year
  Sex: Male
  Weight: 62 kg

DRUGS (3)
  1. OXALIPLATIN. [Concomitant]
     Active Substance: OXALIPLATIN
     Indication: MALIGNANT ANORECTAL NEOPLASM
     Route: 041
     Dates: start: 20200905
  2. XELODA [Suspect]
     Active Substance: CAPECITABINE
     Indication: MALIGNANT ANORECTAL NEOPLASM
     Route: 048
     Dates: start: 20200906, end: 20200908
  3. AVASTIN [Suspect]
     Active Substance: BEVACIZUMAB
     Indication: MALIGNANT ANORECTAL NEOPLASM
     Route: 041
     Dates: start: 20200905

REACTIONS (1)
  - Haemorrhage urinary tract [Recovering/Resolving]

NARRATIVE: CASE EVENT DATE: 20200908
